FAERS Safety Report 15649517 (Version 2)
Quarter: 2018Q4

REPORT INFORMATION
  Report Type: Spontaneous
  Country: AU (occurrence: AU)
  Receive Date: 20181122
  Receipt Date: 20181217
  Transmission Date: 20190205
  Serious: Yes (Other)
  Sender: FDA-Public Use
  Company Number: AU-BEH-2018096875

PATIENT
  Age: 49 Year
  Sex: Male

DRUGS (2)
  1. PRIVIGEN [Suspect]
     Active Substance: HUMAN IMMUNOGLOBULIN G
     Indication: HYPOGAMMAGLOBULINAEMIA
  2. PRIVIGEN [Suspect]
     Active Substance: HUMAN IMMUNOGLOBULIN G
     Indication: CHRONIC LYMPHOCYTIC LEUKAEMIA
     Dosage: 40 G, TOT
     Route: 065
     Dates: start: 20181108, end: 20181108

REACTIONS (12)
  - Vasoconstriction [Recovering/Resolving]
  - Pain in extremity [Recovering/Resolving]
  - Feeling cold [Recovering/Resolving]
  - Serum sickness-like reaction [Recovering/Resolving]
  - Pallor [Recovering/Resolving]
  - Malaise [Recovering/Resolving]
  - Pyrexia [Recovering/Resolving]
  - Pharyngeal erythema [Recovering/Resolving]
  - Tachycardia [Recovering/Resolving]
  - Peripheral coldness [Recovering/Resolving]
  - Oropharyngeal pain [Recovering/Resolving]
  - Chills [Recovering/Resolving]

NARRATIVE: CASE EVENT DATE: 20181108
